FAERS Safety Report 24226460 (Version 1)
Quarter: 2024Q3

REPORT INFORMATION
  Report Type: Spontaneous
  Country: FR (occurrence: FR)
  Receive Date: 20240820
  Receipt Date: 20240820
  Transmission Date: 20241016
  Serious: Yes (Other)
  Sender: HIKMA
  Company Number: FR-HIKMA PHARMACEUTICALS-FR-H14001-24-07584

PATIENT

DRUGS (8)
  1. LEUCOVORIN CALCIUM [Suspect]
     Active Substance: LEUCOVORIN CALCIUM
     Indication: Adenocarcinoma
     Dosage: 1 DOSAGE FORM, SINGLE
     Route: 042
     Dates: start: 20240614, end: 20240614
  2. CETUXIMAB [Suspect]
     Active Substance: CETUXIMAB
     Indication: Adenocarcinoma
     Dosage: 1 DOSAGE FORM, SINGLE
     Route: 042
     Dates: start: 20240614, end: 20240614
  3. IRINOTECAN [Suspect]
     Active Substance: IRINOTECAN
     Indication: Adenocarcinoma
     Dosage: 1 DOSAGE FORM, SINGLE
     Route: 042
     Dates: start: 20240614, end: 20240614
  4. METHYLPREDNISOLONE [Suspect]
     Active Substance: METHYLPREDNISOLONE
     Indication: Adenocarcinoma
     Dosage: C2
     Route: 042
     Dates: start: 20240614, end: 20240614
  5. FUROSEMIDE [Concomitant]
     Active Substance: FUROSEMIDE
     Indication: Ascites
     Dosage: 40 MILLIGRAM, QD
     Route: 048
     Dates: start: 20240423, end: 20240626
  6. KARDEGIC [Concomitant]
     Active Substance: ASPIRIN DL-LYSINE
     Indication: Product used for unknown indication
     Dosage: 75 MILLIGRAM, QD
     Route: 048
     Dates: end: 20240626
  7. METFORMIN HYDROCHLORIDE [Concomitant]
     Active Substance: METFORMIN HYDROCHLORIDE
     Indication: Product used for unknown indication
     Dosage: 1700 MILLIGRAM, QD
     Route: 048
     Dates: end: 20240626
  8. SPIRONOLACTONE [Concomitant]
     Active Substance: SPIRONOLACTONE
     Indication: Ascites
     Dosage: 75 MILLIGRAM, QD
     Route: 048
     Dates: start: 20240319, end: 20240626

REACTIONS (1)
  - Diarrhoea [Recovered/Resolved]

NARRATIVE: CASE EVENT DATE: 20240616
